FAERS Safety Report 22145644 (Version 1)
Quarter: 2023Q1

REPORT INFORMATION
  Report Type: Report from Study
  Country: TW (occurrence: TW)
  Receive Date: 20230328
  Receipt Date: 20230328
  Transmission Date: 20230418
  Serious: Yes (Hospitalization)
  Sender: FDA-Public Use
  Company Number: TW-ABBVIE-4702778

PATIENT
  Age: 83 Year
  Sex: Female

DRUGS (1)
  1. HUMIRA [Suspect]
     Active Substance: ADALIMUMAB
     Indication: Rheumatoid arthritis
     Dosage: FORM STRENGTH 40 MILLIGRAM
     Route: 058
     Dates: start: 20220222

REACTIONS (3)
  - Peptic ulcer perforation [Unknown]
  - Asthenia [Unknown]
  - Hypophagia [Unknown]

NARRATIVE: CASE EVENT DATE: 20230316
